FAERS Safety Report 8161107-9 (Version None)
Quarter: 2012Q1

REPORT INFORMATION
  Report Type: 
  Country: None (occurrence: None)
  Receive Date: 20120224
  Receipt Date: 20120220
  Transmission Date: 20120608
  Serious: Yes (Other)
  Sender: FDA-Public Use
  Company Number: US-PFIZER INC-2012045814

PATIENT
  Sex: Male

DRUGS (1)
  1. SUTENT [Suspect]
     Indication: RENAL CELL CARCINOMA
     Dosage: 50 MG, 1X/DAY (1 CAPSULE DAILY, CYCLE 4 WEEKS ON AND 2 OFF)
     Dates: start: 20120206

REACTIONS (5)
  - CONSTIPATION [None]
  - SKIN IRRITATION [None]
  - HAEMORRHAGE [None]
  - ORAL PAIN [None]
  - ABDOMINAL PAIN UPPER [None]
